FAERS Safety Report 23676982 (Version 1)
Quarter: 2024Q1

REPORT INFORMATION
  Report Type: Spontaneous
  Country: US (occurrence: US)
  Receive Date: 20240327
  Receipt Date: 20240327
  Transmission Date: 20240410
  Serious: No
  Sender: FDA-Public Use
  Company Number: US-TEVA-VS-3159813

PATIENT
  Sex: Female

DRUGS (1)
  1. PROPRANOLOL HYDROCHLORIDE [Suspect]
     Active Substance: PROPRANOLOL HYDROCHLORIDE
     Indication: Electrocardiogram QT prolonged
     Route: 048

REACTIONS (4)
  - Drug ineffective [Unknown]
  - Drug ineffective [Unknown]
  - Abdominal discomfort [Unknown]
  - Night sweats [Unknown]

NARRATIVE: CASE EVENT DATE: 20240101
